FAERS Safety Report 11874691 (Version 1)
Quarter: 2015Q4

REPORT INFORMATION
  Report Type: Report from Study
  Country: US (occurrence: US)
  Receive Date: 20151229
  Receipt Date: 20151229
  Transmission Date: 20160305
  Serious: No
  Sender: FDA-Public Use
  Company Number: PHEH2013US026920

PATIENT
  Sex: Male

DRUGS (5)
  1. TOBI [Suspect]
     Active Substance: TOBRAMYCIN
     Dosage: 300 MG, BID
     Route: 055
     Dates: start: 20140409
  2. TOBI [Suspect]
     Active Substance: TOBRAMYCIN
     Dosage: 300 MG, BID
     Route: 055
     Dates: start: 20140529, end: 20140529
  3. TOBI [Suspect]
     Active Substance: TOBRAMYCIN
     Indication: CYTOGENETIC ABNORMALITY
     Dosage: 300 MG
     Route: 055
     Dates: start: 20130314
  4. TOBI [Suspect]
     Active Substance: TOBRAMYCIN
     Indication: FEEDING DISORDER
     Dosage: 300 MG, BID
     Route: 055
     Dates: start: 20130805
  5. TOBI [Suspect]
     Active Substance: TOBRAMYCIN
     Dosage: 300 MG, BID
     Route: 055
     Dates: end: 20141020

REACTIONS (1)
  - Off label use [Unknown]
